FAERS Safety Report 7813768-9 (Version None)
Quarter: 2011Q4

REPORT INFORMATION
  Report Type: 
  Country: None (occurrence: None)
  Receive Date: 20111011
  Receipt Date: 20110927
  Transmission Date: 20120403
  Serious: Yes (Hospitalization, Other)
  Sender: FDA-Public Use
  Company Number: 2010SP056522

PATIENT
  Age: 27 Year
  Sex: Female
  Weight: 88.4514 kg

DRUGS (2)
  1. NUVARING [Suspect]
     Indication: CONTRACEPTION
     Dates: start: 20050101, end: 20050301
  2. NUVARING [Suspect]
     Indication: OVARIAN CYST
     Dates: start: 20050101, end: 20050301

REACTIONS (44)
  - CHEST PAIN [None]
  - INFLUENZA [None]
  - FURUNCLE [None]
  - INTRACRANIAL VENOUS SINUS THROMBOSIS [None]
  - CEREBROVASCULAR ACCIDENT [None]
  - HEART RATE IRREGULAR [None]
  - DERMATITIS [None]
  - DIARRHOEA [None]
  - MULTIPLE INJURIES [None]
  - HEADACHE [None]
  - INTRACRANIAL PRESSURE INCREASED [None]
  - VARICOSE VEIN [None]
  - SUBARACHNOID HAEMORRHAGE [None]
  - CLITORAL ENGORGEMENT [None]
  - CEREBELLAR ATROPHY [None]
  - CEREBELLAR HAEMORRHAGE [None]
  - ANGINA PECTORIS [None]
  - BRAIN OEDEMA [None]
  - MENTAL DISORDER [None]
  - DIZZINESS [None]
  - ANXIETY [None]
  - UNDERWEIGHT [None]
  - MALABSORPTION [None]
  - ENCEPHALOMALACIA [None]
  - HYPERCOAGULATION [None]
  - PROTEIN C INCREASED [None]
  - THALAMIC INFARCTION [None]
  - EMOTIONAL DISORDER [None]
  - PAPILLOEDEMA [None]
  - SUBCUTANEOUS ABSCESS [None]
  - AFFECT LABILITY [None]
  - IRRITABILITY [None]
  - TRANSVERSE SINUS THROMBOSIS [None]
  - ARTHRALGIA [None]
  - INTERVERTEBRAL DISC PROTRUSION [None]
  - VENOUS INSUFFICIENCY [None]
  - LIMB INJURY [None]
  - SUBDURAL HAEMATOMA [None]
  - PAIN [None]
  - BENIGN INTRACRANIAL HYPERTENSION [None]
  - DERMAL CYST [None]
  - VENOUS OCCLUSION [None]
  - MUSCLE TWITCHING [None]
  - ALOPECIA [None]
